FAERS Safety Report 4328386-7 (Version None)
Quarter: 2004Q1

REPORT INFORMATION
  Report Type: 
  Country: None (occurrence: None)
  Receive Date: 20040325
  Receipt Date: 20040203
  Transmission Date: 20041129
  Serious: Yes (Hospitalization)
  Sender: FDA-Public Use
  Company Number: USA-2004-0012802

PATIENT
  Sex: Female

DRUGS (1)
  1. SPECTRACEF TABLETS 200MG (CEFDITOREN PIVOXIL) [Suspect]
     Indication: EAR INFECTION
     Dosage: 200 MG, BID

REACTIONS (3)
  - ABDOMINAL PAIN [None]
  - CLOSTRIDIUM COLITIS [None]
  - OFF LABEL USE [None]
